FAERS Safety Report 12225727 (Version 1)
Quarter: 2016Q1

REPORT INFORMATION
  Report Type: Spontaneous
  Country: US (occurrence: US)
  Receive Date: 20160331
  Receipt Date: 20160331
  Transmission Date: 20160526
  Serious: Yes (Other)
  Sender: FDA-Public Use
  Company Number: US-B.I. PHARMACEUTICALS,INC./RIDGEFIELD-2016-BI-18848BP

PATIENT
  Sex: Male

DRUGS (1)
  1. PRADAXA [Suspect]
     Active Substance: DABIGATRAN ETEXILATE MESYLATE
     Indication: PRODUCT USED FOR UNKNOWN INDICATION
     Route: 065

REACTIONS (13)
  - Arthropathy [Unknown]
  - Pollakiuria [Unknown]
  - Blood glucose increased [Unknown]
  - Muscle tightness [Unknown]
  - Neuropathy peripheral [Unknown]
  - Poor quality sleep [Unknown]
  - Somnolence [Not Recovered/Not Resolved]
  - Skin ulcer [Unknown]
  - Heart rate irregular [Unknown]
  - Hypoaesthesia [Unknown]
  - Weight increased [Unknown]
  - Blindness unilateral [Unknown]
  - Peripheral swelling [Unknown]
